FAERS Safety Report 9644681 (Version 1)
Quarter: 2013Q4

REPORT INFORMATION
  Report Type: Spontaneous
  Country: FR (occurrence: FR)
  Receive Date: 20131025
  Receipt Date: 20131025
  Transmission Date: 20140711
  Serious: Yes (Hospitalization)
  Sender: FDA-Public Use
  Company Number: FR-JNJFOC-20131010537

PATIENT
  Age: 52 Year
  Sex: Male

DRUGS (4)
  1. RISPERDAL [Suspect]
     Indication: PSYCHOTIC DISORDER
     Route: 048
     Dates: end: 20131014
  2. RISPERDAL [Suspect]
     Indication: PSYCHOTIC DISORDER
     Route: 048
     Dates: start: 20131016
  3. TERCIAN [Concomitant]
     Route: 065
     Dates: start: 20131016
  4. TERCIAN [Concomitant]
     Route: 065
     Dates: end: 20131015

REACTIONS (3)
  - Drug level increased [Recovering/Resolving]
  - Malaise [Recovered/Resolved]
  - Orthostatic hypotension [Recovered/Resolved]
